FAERS Safety Report 9393265 (Version 2)
Quarter: 2013Q4

REPORT INFORMATION
  Report Type: Spontaneous
  Country: US (occurrence: US)
  Receive Date: 20130710
  Receipt Date: 20131220
  Transmission Date: 20140711
  Serious: Yes (Hospitalization, Other)
  Sender: FDA-Public Use
  Company Number: US-PFIZER INC-2013200136

PATIENT
  Age: 71 Year
  Sex: Female
  Weight: 77 kg

DRUGS (4)
  1. XELJANZ [Suspect]
     Indication: OSTEOARTHRITIS
     Dosage: 5 MG, 2X/DAY
     Route: 048
  2. XELJANZ [Suspect]
     Indication: OSTEOPOROSIS
  3. XELJANZ [Suspect]
     Indication: FIBROMYALGIA
  4. XELJANZ [Suspect]
     Indication: RHEUMATOID ARTHRITIS

REACTIONS (1)
  - Pulmonary embolism [Unknown]
